FAERS Safety Report 9992199 (Version 5)
Quarter: 2014Q2

REPORT INFORMATION
  Report Type: Report from Study
  Country: CA (occurrence: CA)
  Receive Date: 20140310
  Receipt Date: 20140519
  Transmission Date: 20141212
  Serious: Yes (Hospitalization)
  Sender: FDA-Public Use
  Company Number: CA-BRISTOL-MYERS SQUIBB COMPANY-19927359

PATIENT
  Age: 77 Year
  Sex: Male

DRUGS (14)
  1. ORENCIA [Suspect]
     Indication: RHEUMATOID ARTHRITIS
     Dosage: 1 DF= 750 UNIT NOS?12APR14 INFUSION WAS CANCELLED
     Route: 042
     Dates: start: 20120629
  2. TEMAZEPAM [Concomitant]
  3. OXYCOCET [Concomitant]
  4. TAMSULOSIN [Concomitant]
  5. CRESTOR [Concomitant]
  6. CYMBALTA [Concomitant]
  7. SYNTHROID [Concomitant]
  8. AVODART [Concomitant]
  9. COVERSYL [Concomitant]
  10. METFORMIN [Concomitant]
  11. PREDNISONE [Concomitant]
  12. CARVEDILOL [Concomitant]
  13. FUROSEMIDE [Concomitant]
  14. FLORINEF [Concomitant]

REACTIONS (8)
  - Fall [Unknown]
  - Dizziness [Unknown]
  - Hypotension [Unknown]
  - Skin abrasion [Unknown]
  - Mass [Unknown]
  - Wound [Unknown]
  - Dyspnoea [Unknown]
  - Lower respiratory tract infection [Unknown]
